FAERS Safety Report 25576955 (Version 2)
Quarter: 2025Q4

REPORT INFORMATION
  Report Type: Spontaneous
  Country: US (occurrence: US)
  Receive Date: 20250718
  Receipt Date: 20251002
  Transmission Date: 20260118
  Serious: Yes (Other)
  Sender: PFIZER
  Company Number: US-PFIZER INC-202500144457

PATIENT
  Age: 69 Year
  Sex: Female

DRUGS (1)
  1. IBRANCE [Suspect]
     Active Substance: PALBOCICLIB
     Dosage: FOR 21 DAYS, 7 DAYS OFF

REACTIONS (4)
  - Second primary malignancy [Unknown]
  - Bone cancer [Unknown]
  - Anaemia [Unknown]
  - Chronic obstructive pulmonary disease [Unknown]
